FAERS Safety Report 9736194 (Version 4)
Quarter: 2014Q2

REPORT INFORMATION
  Report Type: Report from Study
  Country: AU (occurrence: AU)
  Receive Date: 20131206
  Receipt Date: 20140408
  Transmission Date: 20141212
  Serious: Yes (Hospitalization, Other)
  Sender: FDA-Public Use
  Company Number: AU-ROCHE-1296859

PATIENT
  Age: 66 Year
  Sex: Male
  Weight: 97 kg

DRUGS (9)
  1. ACTEMRA [Suspect]
     Indication: RHEUMATOID ARTHRITIS
     Dosage: THERAPY ON HOLD
     Route: 042
  2. ACTEMRA [Suspect]
     Route: 042
     Dates: start: 20130917, end: 20140323
  3. METHOTREXATE [Concomitant]
     Indication: RHEUMATOID ARTHRITIS
     Route: 048
  4. DIABEX [Concomitant]
     Indication: DIABETES MELLITUS
     Route: 048
  5. DIABEX [Concomitant]
     Route: 048
  6. SIMVASTATIN [Concomitant]
     Indication: BLOOD CHOLESTEROL
     Route: 048
  7. PREDNISONE [Concomitant]
     Indication: RHEUMATOID ARTHRITIS
     Route: 048
  8. DIAMICRON [Concomitant]
     Indication: DIABETES MELLITUS
     Route: 048
  9. ASPIRIN [Concomitant]
     Indication: ANTICOAGULANT THERAPY
     Route: 048

REACTIONS (12)
  - Appendicitis perforated [Recovered/Resolved]
  - Appendiceal abscess [Recovered/Resolved]
  - Abscess intestinal [Recovered/Resolved]
  - Diarrhoea [Unknown]
  - Vomiting [Unknown]
  - Intestinal obstruction [Unknown]
  - Scar [Recovering/Resolving]
  - Intestinal haemorrhage [Not Recovered/Not Resolved]
  - Diarrhoea [Not Recovered/Not Resolved]
  - Weight decreased [Unknown]
  - Arthralgia [Not Recovered/Not Resolved]
  - Melanocytic naevus [Recovered/Resolved]
